FAERS Safety Report 17044566 (Version 1)
Quarter: 2019Q4

REPORT INFORMATION
  Report Type: Spontaneous
  Country: US (occurrence: US)
  Receive Date: 20191118
  Receipt Date: 20191118
  Transmission Date: 20200122
  Serious: No
  Sender: FDA-Public Use
  Company Number: US-HERON THERAPEUTICS, INC-HRTX-2019-000591

PATIENT
  Age: 52 Year
  Sex: Male

DRUGS (2)
  1. CINVANTI [Suspect]
     Active Substance: APREPITANT
     Indication: PRODUCT USED FOR UNKNOWN INDICATION
     Dosage: 130 MG, UNK
     Dates: start: 20190826
  2. DECADRON [Concomitant]
     Active Substance: DEXAMETHASONE
     Indication: PRODUCT USED FOR UNKNOWN INDICATION
     Dosage: UNK
     Dates: start: 20190826

REACTIONS (3)
  - No adverse event [Unknown]
  - Intercepted product preparation error [Unknown]
  - Product deposit [Unknown]

NARRATIVE: CASE EVENT DATE: 20190826
